FAERS Safety Report 25288834 (Version 1)
Quarter: 2025Q2

REPORT INFORMATION
  Report Type: Spontaneous
  Country: CA (occurrence: CA)
  Receive Date: 20250509
  Receipt Date: 20250509
  Transmission Date: 20250716
  Serious: Yes (Death, Hospitalization)
  Sender: MERCK SHARP & DOHME LLC
  Company Number: CA-009507513-2281266

PATIENT
  Age: 75 Year
  Sex: Female
  Weight: 63 kg

DRUGS (1)
  1. KEYTRUDA [Suspect]
     Active Substance: PEMBROLIZUMAB
     Indication: Lung adenocarcinoma stage IV
     Dosage: INFUSION. 4 ML SINGLE USE VIAL.
     Route: 042

REACTIONS (5)
  - Acute kidney injury [Fatal]
  - Ejection fraction decreased [Fatal]
  - Hypotension [Fatal]
  - Myocarditis [Fatal]
  - N-terminal prohormone brain natriuretic peptide increased [Fatal]
